FAERS Safety Report 6909772-5 (Version None)
Quarter: 2010Q3

REPORT INFORMATION
  Report Type: 
  Country: None (occurrence: None)
  Receive Date: 20100806
  Receipt Date: 20100728
  Transmission Date: 20110219
  Serious: Yes (Hospitalization)
  Sender: FDA-Public Use
  Company Number: US-BIOGENIDEC-2010BI025596

PATIENT
  Age: 60 Year
  Sex: Female
  Weight: 68 kg

DRUGS (3)
  1. AVONEX [Suspect]
     Indication: MULTIPLE SCLEROSIS
     Route: 030
     Dates: start: 19990101, end: 20030801
  2. AVONEX [Suspect]
     Route: 030
     Dates: start: 20030901, end: 20050101
  3. AVONEX [Suspect]
     Route: 030
     Dates: start: 20070101

REACTIONS (6)
  - CATHETER REMOVAL [None]
  - DYSPHAGIA [None]
  - GASTRIC PERFORATION [None]
  - HIATUS HERNIA [None]
  - OXYGEN SATURATION DECREASED [None]
  - PLEURAL EFFUSION [None]
